FAERS Safety Report 8260896-2 (Version None)
Quarter: 2012Q2

REPORT INFORMATION
  Report Type: 
  Country: None (occurrence: None)
  Receive Date: 20120405
  Receipt Date: 20120403
  Transmission Date: 20120825
  Serious: No
  Sender: FDA-Public Use
  Company Number: GB-ACCORD-012924

PATIENT
  Age: 88 Year
  Sex: Female

DRUGS (9)
  1. NICORANDIL [Concomitant]
     Indication: ANGINA PECTORIS
     Route: 048
  2. FERROUS SULFATE TAB [Concomitant]
     Indication: ANAEMIA
     Route: 048
  3. TEICOPLANIN [Concomitant]
     Indication: INFECTION
     Route: 042
  4. ISMN [Concomitant]
     Indication: ANGINA PECTORIS
  5. ACETAMINOPHEN [Concomitant]
     Indication: PAIN
     Dosage: 1 G QDS
     Route: 048
  6. FINASTERIDE [Suspect]
     Route: 048
     Dates: start: 20120330, end: 20120402
  7. LANSOPRAZOLE [Concomitant]
     Route: 048
  8. LACTULOSE [Concomitant]
     Indication: CONSTIPATION
     Route: 048
  9. SIMVASTATIN [Concomitant]
     Indication: LIPIDS ABNORMAL
     Dosage: NOCTE

REACTIONS (3)
  - DRUG DISPENSING ERROR [None]
  - NO ADVERSE EVENT [None]
  - WRONG DRUG ADMINISTERED [None]
